FAERS Safety Report 4847042-X (Version None)
Quarter: 2005Q4

REPORT INFORMATION
  Report Type: 
  Country: None (occurrence: None)
  Receive Date: 20051205
  Receipt Date: 20051119
  Transmission Date: 20060501
  Serious: Yes (Other)
  Sender: FDA-Public Use
  Company Number: 2005PV005206

PATIENT
  Sex: Female

DRUGS (2)
  1. BYETTA [Suspect]
     Indication: DIABETES MELLITUS
     Dates: start: 20050101, end: 20050101
  2. STEROID NOS [Concomitant]

REACTIONS (3)
  - HYPOGLYCAEMIA [None]
  - METABOLIC SYNDROME [None]
  - PANCREAS TRANSPLANT REJECTION [None]
